FAERS Safety Report 10442453 (Version 1)
Quarter: 2014Q3

REPORT INFORMATION
  Report Type: Spontaneous
  Country: US (occurrence: None)
  Receive Date: 20140908
  Receipt Date: 20140908
  Transmission Date: 20150326
  Serious: Yes (Hospitalization, Other)
  Sender: FDA-Public Use
  Company Number: 2014SUP00045

PATIENT
  Age: 28 Year
  Sex: Female

DRUGS (8)
  1. TROKENDI XR [Suspect]
     Active Substance: TOPIRAMATE
     Indication: PAIN
     Route: 048
     Dates: start: 2011
  2. TROKENDI XR [Suspect]
     Active Substance: TOPIRAMATE
     Indication: HUNGER
     Route: 048
     Dates: start: 2011
  3. TROKENDI XR [Suspect]
     Active Substance: TOPIRAMATE
     Indication: OVERWEIGHT
     Route: 048
     Dates: start: 2011
  4. UNSPECIFIED PSYCHIATRIC MEDICATIONS [Concomitant]
  5. TROKENDI XR [Suspect]
     Active Substance: TOPIRAMATE
     Indication: MIGRAINE
     Dosage: 1 TABLETS . 1X/DAY, ORAL
     Route: 048
     Dates: start: 2011
  6. TROKENDI XR [Suspect]
     Active Substance: TOPIRAMATE
     Indication: PAIN
     Dosage: 1 TABLETS . 1X/DAY, ORAL
     Route: 048
     Dates: start: 2011
  7. TROKENDI XR [Suspect]
     Active Substance: TOPIRAMATE
     Indication: HUNGER
     Dosage: 1 TABLETS . 1X/DAY, ORAL
     Route: 048
     Dates: start: 2011
  8. TROKENDI XR [Suspect]
     Active Substance: TOPIRAMATE
     Indication: MIGRAINE
     Route: 048
     Dates: start: 2011

REACTIONS (6)
  - Off label use [None]
  - Dissociative disorder [None]
  - Unresponsive to stimuli [None]
  - Loss of consciousness [None]
  - Staring [None]
  - Road traffic accident [None]

NARRATIVE: CASE EVENT DATE: 2011
